FAERS Safety Report 8862531 (Version 2)
Quarter: 2012Q4

REPORT INFORMATION
  Report Type: 
  Country: BR (occurrence: BR)
  Receive Date: 20121026
  Receipt Date: 20121114
  Transmission Date: 20130627
  Serious: Yes (Other)
  Sender: FDA-Public Use
  Company Number: BR-ABBOTT-12P-020-0998136-00

PATIENT
  Sex: Male
  Weight: 111 kg

DRUGS (5)
  1. DEPAKOTE ER [Suspect]
  2. DEPAKOTE ER [Suspect]
     Dates: end: 20121003
  3. UNKNOWN MEDICATION [Concomitant]
     Indication: DIABETES MELLITUS
  4. UNKNOWN MEDICATION [Concomitant]
     Indication: SLEEP DISORDER THERAPY
  5. UNKNOWN MEDICATION [Concomitant]
     Indication: HYPERTENSION

REACTIONS (4)
  - Convulsion [Not Recovered/Not Resolved]
  - Weight increased [Unknown]
  - Bipolar disorder [Recovered/Resolved]
  - Tablet physical issue [Not Recovered/Not Resolved]
